FAERS Safety Report 5808079-7 (Version None)
Quarter: 2008Q3

REPORT INFORMATION
  Report Type: 
  Country: None (occurrence: None)
  Receive Date: 20080708
  Receipt Date: 20080624
  Transmission Date: 20090109
  Serious: Yes (Disabling)
  Sender: FDA-Public Use
  Company Number: TPH-00043

PATIENT
  Age: 31 Year
  Sex: Female

DRUGS (2)
  1. TRIQUILAR [Suspect]
     Indication: MENSTRUATION IRREGULAR
     Dosage: 1 DF ORAL
     Route: 048
     Dates: start: 20071001, end: 20080401
  2. TRIQUILAR [Suspect]
     Indication: ORAL CONTRACEPTION
     Dosage: 1 DF ORAL
     Route: 048
     Dates: start: 20071001, end: 20080401

REACTIONS (1)
  - LACUNAR INFARCTION [None]
